FAERS Safety Report 15197745 (Version 1)
Quarter: 2018Q3

REPORT INFORMATION
  Report Type: Spontaneous
  Country: US (occurrence: US)
  Receive Date: 20180725
  Receipt Date: 20180725
  Transmission Date: 20181010
  Serious: No
  Sender: FDA-Public Use
  Company Number: US-ABBVIE-17P-163-2074911-00

PATIENT
  Age: 55 Year
  Sex: Female
  Weight: 85.81 kg

DRUGS (1)
  1. SYNTHROID [Suspect]
     Active Substance: LEVOTHYROXINE SODIUM
     Indication: HYPOTHYROIDISM
     Dosage: 100 MCG UP TO 137MCG OVER 35 YEARS
     Route: 048
     Dates: start: 1982, end: 201704

REACTIONS (9)
  - Alopecia [Recovering/Resolving]
  - Gestational diabetes [Recovered/Resolved]
  - Exposure during pregnancy [Unknown]
  - Dry skin [Recovering/Resolving]
  - Onychoclasis [Recovering/Resolving]
  - Weight increased [Recovering/Resolving]
  - Tri-iodothyronine increased [Recovering/Resolving]
  - Fatigue [Recovered/Resolved with Sequelae]
  - Weight decreased [Not Recovered/Not Resolved]

NARRATIVE: CASE EVENT DATE: 201704
